FAERS Safety Report 14061527 (Version 1)
Quarter: 2017Q4

REPORT INFORMATION
  Report Type: Spontaneous
  Country: FR (occurrence: FR)
  Receive Date: 20171009
  Receipt Date: 20171009
  Transmission Date: 20180321
  Serious: Yes (Other)
  Sender: FDA-Public Use
  Company Number: FR-AMGEN-FRASP2017139161

PATIENT
  Age: 53 Year
  Sex: Female
  Weight: 93.5 kg

DRUGS (1)
  1. PARSABIV [Suspect]
     Active Substance: ETELCALCETIDE HYDROCHLORIDE
     Indication: HYPERPARATHYROIDISM SECONDARY
     Dosage: 5 MG, UNK
     Route: 042
     Dates: start: 20170902, end: 20170908

REACTIONS (2)
  - Pruritus [Recovered/Resolved]
  - Parathyroidectomy [Unknown]

NARRATIVE: CASE EVENT DATE: 20170902
